FAERS Safety Report 19780146 (Version 1)
Quarter: 2021Q3

REPORT INFORMATION
  Report Type: Spontaneous
  Country: CA (occurrence: CA)
  Receive Date: 20210902
  Receipt Date: 20210902
  Transmission Date: 20211014
  Serious: Yes (Death)
  Sender: FDA-Public Use
  Company Number: CA-TEVA-2021-CA-1947147

PATIENT
  Age: 71 Year
  Sex: Male

DRUGS (8)
  1. BRILINTA [Concomitant]
     Active Substance: TICAGRELOR
  2. METHOTREXATE. [Concomitant]
     Active Substance: METHOTREXATE
  3. PANTOPRAZOLE [Concomitant]
     Active Substance: PANTOPRAZOLE
  4. ASA [Concomitant]
     Active Substance: ASPIRIN
  5. METOPROLOL. [Concomitant]
     Active Substance: METOPROLOL
  6. ORENCIA [Concomitant]
     Active Substance: ABATACEPT
     Route: 042
  7. LEFLUNOMIDE. [Suspect]
     Active Substance: LEFLUNOMIDE
     Route: 065
  8. FOLIC ACID. [Concomitant]
     Active Substance: FOLIC ACID

REACTIONS (6)
  - Haemophagocytic lymphohistiocytosis [Fatal]
  - Myelodysplastic syndrome [Fatal]
  - Hypoxia [Fatal]
  - Pneumonia [Fatal]
  - Asthenia [Fatal]
  - Jaundice extrahepatic obstructive [Fatal]
